FAERS Safety Report 6722756-5 (Version None)
Quarter: 2010Q2

REPORT INFORMATION
  Report Type: 
  Country: None (occurrence: None)
  Receive Date: 20100511
  Receipt Date: 20100428
  Transmission Date: 20101027
  Serious: Yes (Death)
  Sender: FDA-Public Use
  Company Number: UK-2010-0967

PATIENT
  Sex: Female

DRUGS (13)
  1. NAVELBINE [Suspect]
     Indication: LUNG NEOPLASM MALIGNANT
     Dosage: 110 MG IV
     Route: 042
     Dates: start: 20100204, end: 20100422
  2. CARBOPLATIN [Suspect]
     Indication: LUNG NEOPLASM MALIGNANT
     Dosage: 400 MG PO
     Route: 048
     Dates: start: 20100204, end: 20100422
  3. DALTEPARIN SODIUM [Suspect]
     Dates: start: 20100202, end: 20100408
  4. DALTEPARIN SODIUM [Suspect]
     Dates: start: 20100415, end: 20100425
  5. LEVOTHYROXINE SODIUM [Concomitant]
  6. ZOPICLONE [Concomitant]
  7. SIBUTRAMINE [Concomitant]
  8. RAMIPRIL BETA [Concomitant]
  9. SIMVASTATIN [Concomitant]
  10. TRAMADOL GENERICS [Concomitant]
  11. PARACETAMOL [Concomitant]
  12. MST [Concomitant]
  13. NEULASTA [Concomitant]

REACTIONS (6)
  - BLOOD FIBRINOGEN INCREASED [None]
  - BLOOD GLUCOSE INCREASED [None]
  - HAEMOGLOBIN DECREASED [None]
  - NEUTROPENIA [None]
  - PLATELET COUNT DECREASED [None]
  - PROTHROMBIN TIME PROLONGED [None]
